FAERS Safety Report 23466051 (Version 1)
Quarter: 2024Q1

REPORT INFORMATION
  Report Type: Spontaneous
  Country: JP (occurrence: JP)
  Receive Date: 20240201
  Receipt Date: 20240201
  Transmission Date: 20240410
  Serious: Yes (Other)
  Sender: FDA-Public Use
  Company Number: JP-Eisai-202313121_LEN-HCC_P_1

PATIENT
  Sex: Male

DRUGS (1)
  1. LENVIMA [Suspect]
     Active Substance: LENVATINIB
     Indication: Product used for unknown indication
     Dosage: DOSE AND FREQUENCY UNKNOWN
     Route: 048

REACTIONS (1)
  - Tumour haemorrhage [Recovering/Resolving]
